FAERS Safety Report 4998757-4 (Version None)
Quarter: 2006Q2

REPORT INFORMATION
  Report Type: 
  Country: None (occurrence: None)
  Receive Date: 20060509
  Receipt Date: 20060426
  Transmission Date: 20061013
  Serious: Yes (Death, Hospitalization)
  Sender: FDA-Public Use
  Company Number: 2006002929

PATIENT
  Age: 67 Year
  Sex: Male
  Weight: 86.4556 kg

DRUGS (23)
  1. SUTENT [Suspect]
     Indication: RENAL CELL CARCINOMA STAGE UNSPECIFIED
     Dosage: 37.5 MG (12.5 MG, 3 CAPS ONCE A DAY), ORAL
     Route: 048
     Dates: start: 20051208, end: 20060104
  2. SUTENT [Suspect]
  3. PROMETHAZINE [Concomitant]
  4. CALCIUM ACETATE [Concomitant]
  5. SIMVASTATIN [Concomitant]
  6. ROSIGLITAZONE MALEATE [Concomitant]
  7. NIFEDIPINE [Concomitant]
  8. SERTRALINE HCL [Concomitant]
  9. PRAZOSIN HCL [Concomitant]
  10. EPOETIN (ERYTHROPOIETIN) [Concomitant]
  11. NPH INSULIN [Concomitant]
  12. ASPIRIN [Concomitant]
  13. SYNTHROID [Concomitant]
  14. IRON [Concomitant]
  15. CLONIDINE HCL [Concomitant]
  16. TYLENOL PM (DIPHENHYDRAMINE, PARACETAMOL) [Concomitant]
  17. BENADRYL [Concomitant]
  18. SODIUM BICARBONATE [Concomitant]
  19. INSULIN, REGULAR (INSULIN) [Concomitant]
  20. ACIPHEX [Concomitant]
  21. ACETAMINOPHEN [Concomitant]
  22. OXYCODONE [Concomitant]
  23. LOPERAMIDE [Concomitant]

REACTIONS (4)
  - ABDOMINAL PAIN [None]
  - GASTROINTESTINAL HAEMORRHAGE [None]
  - HAEMATEMESIS [None]
  - HAEMORRHAGE [None]
